FAERS Safety Report 5511654-0 (Version None)
Quarter: 2007Q4

REPORT INFORMATION
  Report Type: 
  Country: None (occurrence: None)
  Receive Date: 20071109
  Receipt Date: 20071026
  Transmission Date: 20080405
  Serious: Yes (Other)
  Sender: FDA-Public Use
  Company Number: GB-RANBAXY-2007RR-11099

PATIENT

DRUGS (2)
  1. RISPERIDONE [Suspect]
     Dosage: 2 MG, UNK
     Route: 048
  2. RISPERDAL [Suspect]
     Dosage: 37.5 MG, UNK
     Route: 030

REACTIONS (2)
  - DRUG INEFFECTIVE [None]
  - HALLUCINATION, AUDITORY [None]
